FAERS Safety Report 5392411-5 (Version None)
Quarter: 2007Q3

REPORT INFORMATION
  Report Type: 
  Country: None (occurrence: None)
  Receive Date: 20070720
  Receipt Date: 20070712
  Transmission Date: 20080115
  Serious: Yes (Other)
  Sender: FDA-Public Use
  Company Number: B0478863A

PATIENT
  Age: 57 Year
  Sex: Female

DRUGS (1)
  1. AVANDIA [Suspect]
     Indication: TYPE 2 DIABETES MELLITUS
     Dosage: 8MG PER DAY
     Route: 048
     Dates: start: 20070201, end: 20070201

REACTIONS (4)
  - GENERALISED OEDEMA [None]
  - MACULAR OEDEMA [None]
  - URINARY RETENTION [None]
  - VISUAL ACUITY REDUCED [None]
